APPROVED DRUG PRODUCT: VIGABATRIN
Active Ingredient: VIGABATRIN
Strength: 500MG/PACKET
Dosage Form/Route: FOR SOLUTION;ORAL
Application: A213375 | Product #001 | TE Code: AA
Applicant: ALKEM LABORATORIES LTD
Approved: Dec 2, 2020 | RLD: No | RS: No | Type: RX